FAERS Safety Report 21714829 (Version 1)
Quarter: 2022Q4

REPORT INFORMATION
  Report Type: Spontaneous
  Country: RU (occurrence: RU)
  Receive Date: 20221212
  Receipt Date: 20221212
  Transmission Date: 20230113
  Serious: Yes (Death, Other)
  Sender: FDA-Public Use
  Company Number: RU-FreseniusKabi-FK202217605

PATIENT
  Age: 59 Year
  Sex: Female

DRUGS (6)
  1. ACETAMINOPHEN [Suspect]
     Active Substance: ACETAMINOPHEN
     Indication: Coronavirus infection
  2. CEFTRIAXONE [Suspect]
     Active Substance: CEFTRIAXONE
     Indication: Coronavirus infection
  3. FAVIPIRAVIR [Concomitant]
     Active Substance: FAVIPIRAVIR
     Indication: Coronavirus infection
  4. BARICITINIB [Concomitant]
     Active Substance: BARICITINIB
     Indication: Coronavirus infection
  5. METHYLPREDNISOLONE [Concomitant]
     Active Substance: METHYLPREDNISOLONE
     Indication: Coronavirus infection
  6. AMOXICILLIN\CLAVULANIC ACID [Concomitant]
     Active Substance: AMOXICILLIN\CLAVULANIC ACID
     Indication: Coronavirus infection

REACTIONS (1)
  - Hepatitis cholestatic [Fatal]
